FAERS Safety Report 6214483-8 (Version None)
Quarter: 2009Q2

REPORT INFORMATION
  Report Type: 
  Country: None (occurrence: None)
  Receive Date: 20090604
  Receipt Date: 20090527
  Transmission Date: 20091009
  Serious: Yes (Hospitalization)
  Sender: FDA-Public Use
  Company Number: ZA-JNJFOC-20090600459

PATIENT

DRUGS (2)
  1. REVELLEX [Suspect]
     Dosage: 2ND INFUSION
     Route: 042
  2. REVELLEX [Suspect]
     Indication: DRUG USE FOR UNKNOWN INDICATION
     Dosage: 1ST INFUSION ^2007/2008^
     Route: 042

REACTIONS (1)
  - SKIN REACTION [None]
